FAERS Safety Report 8196044 (Version 2)
Quarter: 2012Q4

REPORT INFORMATION
  Report Type: 
  Country: JP (occurrence: JP)
  Receive Date: 20111024
  Receipt Date: 20121203
  Transmission Date: 20130627
  Serious: Yes (Hospitalization, Other)
  Sender: FDA-Public Use
  Company Number: JP-ELI_LILLY_AND_COMPANY-JP201010006590

PATIENT
  Age: 78 Year
  Sex: Male

DRUGS (1)
  1. GEMZAR [Suspect]
     Indication: URETHRAL CANCER METASTATIC
     Dosage: 1000 mg/m2, other
     Route: 042
     Dates: start: 2009, end: 2010

REACTIONS (6)
  - Neutrophil count decreased [Recovered/Resolved]
  - Biliary tract disorder [Unknown]
  - Jaundice cholestatic [Unknown]
  - Biliary tract infection [Unknown]
  - Platelet count decreased [Recovered/Resolved]
  - Malaise [Unknown]
